FAERS Safety Report 22371019 (Version 1)
Quarter: 2023Q2

REPORT INFORMATION
  Report Type: Spontaneous
  Country: US (occurrence: US)
  Receive Date: 20230526
  Receipt Date: 20230526
  Transmission Date: 20230722
  Serious: No
  Sender: FDA-Public Use
  Company Number: US-SA-SAC20230525000885

PATIENT
  Age: 69 Year
  Sex: Female

DRUGS (7)
  1. DUPIXENT [Suspect]
     Active Substance: DUPILUMAB
     Indication: Dermatitis atopic
     Dosage: 300 MG, QOW
     Route: 058
     Dates: start: 20230331
  2. MIRTAZAPINE [Concomitant]
     Active Substance: MIRTAZAPINE
  3. KETOCONAZOLE [Concomitant]
     Active Substance: KETOCONAZOLE
  4. CLOBETASOL PROPIONATE [Concomitant]
     Active Substance: CLOBETASOL PROPIONATE
  5. PRAVASTATIN [Concomitant]
     Active Substance: PRAVASTATIN
  6. HYDROCORTISONE [Concomitant]
     Active Substance: HYDROCORTISONE
  7. DICYCLOMINE [Concomitant]
     Active Substance: DICYCLOMINE HYDROCHLORIDE

REACTIONS (2)
  - Injection site pain [Not Recovered/Not Resolved]
  - Lack of injection site rotation [Unknown]

NARRATIVE: CASE EVENT DATE: 20230331
